FAERS Safety Report 4869306-6 (Version None)
Quarter: 2005Q4

REPORT INFORMATION
  Report Type: 
  Country: None (occurrence: None)
  Receive Date: 20051230
  Receipt Date: 20051221
  Transmission Date: 20060501
  Serious: Yes (Disabling, Other)
  Sender: FDA-Public Use
  Company Number: US-JNJFOC-20051205768

PATIENT
  Age: 50 Year
  Sex: Female
  Weight: 65.77 kg

DRUGS (4)
  1. TOPAMAX [Suspect]
     Dosage: TWO 100 MG TABLETS MORNING, ONE 100 MG EVENING
     Route: 048
  2. MURO [Concomitant]
  3. MURO [Concomitant]
  4. MURO [Concomitant]
     Indication: FUCHS' SYNDROME

REACTIONS (1)
  - BLINDNESS [None]
